FAERS Safety Report 5010234-3 (Version None)
Quarter: 2006Q2

REPORT INFORMATION
  Report Type: 
  Country: None (occurrence: None)
  Receive Date: 20060524
  Receipt Date: 20060427
  Transmission Date: 20061013
  Serious: Yes (Hospitalization, Other)
  Sender: FDA-Public Use
  Company Number: US-MERCK-0604USA04319

PATIENT
  Age: 69 Year
  Sex: Male

DRUGS (7)
  1. ZETIA [Suspect]
     Indication: HYPERCHOLESTEROLAEMIA
     Route: 048
     Dates: end: 20060301
  2. PRAVACHOL [Concomitant]
     Route: 065
     Dates: end: 20060301
  3. ATENOLOL [Concomitant]
     Route: 065
  4. NORVASC [Concomitant]
     Route: 065
  5. CHLORTHALIDONE [Concomitant]
     Route: 065
  6. NOVOLIN 70/30 [Concomitant]
     Route: 065
  7. ASPIRIN [Concomitant]
     Route: 065

REACTIONS (5)
  - CHOLELITHIASIS [None]
  - HYPERTENSION [None]
  - RENAL FAILURE ACUTE [None]
  - RHABDOMYOLYSIS [None]
  - VIRAL INFECTION [None]
